FAERS Safety Report 23580841 (Version 4)
Quarter: 2024Q2

REPORT INFORMATION
  Report Type: Report from Study
  Country: US (occurrence: US)
  Receive Date: 20240229
  Receipt Date: 20240510
  Transmission Date: 20240715
  Serious: Yes (Hospitalization, Other)
  Sender: FDA-Public Use
  Company Number: US-ARGENX-2024-ARGX-US001240

PATIENT

DRUGS (1)
  1. VYVGART [Suspect]
     Active Substance: EFGARTIGIMOD ALFA-FCAB
     Indication: Myasthenia gravis
     Dosage: UNK
     Route: 042
     Dates: start: 20220926

REACTIONS (10)
  - Aphasia [Unknown]
  - Eyelid ptosis [Unknown]
  - Loss of consciousness [Unknown]
  - Myasthenia gravis [Unknown]
  - Myasthenia gravis [Unknown]
  - Procedural nausea [Unknown]
  - Somnolence [Unknown]
  - Stress [Unknown]
  - Tremor [Unknown]
  - Therapeutic response shortened [Unknown]

NARRATIVE: CASE EVENT DATE: 20240217
